FAERS Safety Report 18507113 (Version 1)
Quarter: 2020Q4

REPORT INFORMATION
  Report Type: Spontaneous
  Country: CN (occurrence: CN)
  Receive Date: 20201116
  Receipt Date: 20201116
  Transmission Date: 20210114
  Serious: Yes (Other)
  Sender: FDA-Public Use
  Company Number: CN-009507513-2008CHN004968

PATIENT
  Age: 79 Year
  Sex: Male

DRUGS (3)
  1. METFORMIN HYDROCHLORIDE. [Suspect]
     Active Substance: METFORMIN HYDROCHLORIDE
     Dosage: 0.5 GRAM, BID
     Route: 048
     Dates: start: 20200112
  2. PROSCAR [Suspect]
     Active Substance: FINASTERIDE
     Dosage: 5MG, QD
     Route: 048
     Dates: start: 20191020
  3. JANUVIA [Suspect]
     Active Substance: SITAGLIPTIN PHOSPHATE
     Indication: DIABETES MELLITUS
     Dosage: 100 MILLIGRAM, QD
     Route: 048
     Dates: start: 201909

REACTIONS (37)
  - Anaemia [Unknown]
  - Bite [Unknown]
  - Dermatitis [Unknown]
  - Upper respiratory tract infection [Unknown]
  - Nasopharyngitis [Unknown]
  - Cerebral ischaemia [Unknown]
  - Oral disorder [Unknown]
  - Periodontitis [Unknown]
  - Sleep disorder [Unknown]
  - Urethritis [Unknown]
  - Sinusitis [Unknown]
  - Bronchitis [Unknown]
  - Stomatitis [Unknown]
  - Drug hypersensitivity [Unknown]
  - Anorectal disorder [Unknown]
  - Vertebrobasilar insufficiency [Unknown]
  - Hypovitaminosis [Unknown]
  - Dysuria [Unknown]
  - Haemorrhoids [Unknown]
  - Insomnia [Unknown]
  - Angular cheilitis [Unknown]
  - Gonorrhoea [Unknown]
  - Essential hypertension [Unknown]
  - Vertigo [Unknown]
  - Aphthous ulcer [Unknown]
  - Tinea pedis [Unknown]
  - Hyperhidrosis [Unknown]
  - Cough [Unknown]
  - Dizziness [Unknown]
  - Diabetic retinopathy [Unknown]
  - Mouth ulceration [Not Recovered/Not Resolved]
  - Neck pain [Unknown]
  - Benign prostatic hyperplasia [Unknown]
  - Conjunctivitis [Unknown]
  - Constipation [Unknown]
  - Asthenia [Unknown]
  - Dermatitis allergic [Unknown]

NARRATIVE: CASE EVENT DATE: 201909
